FAERS Safety Report 11692570 (Version 1)
Quarter: 2015Q4

REPORT INFORMATION
  Report Type: Spontaneous
  Country: US (occurrence: US)
  Receive Date: 20151103
  Receipt Date: 20151103
  Transmission Date: 20160304
  Serious: No
  Sender: FDA-Public Use
  Company Number: US-PFIZER INC-2015366247

PATIENT
  Age: 51 Year
  Sex: Female

DRUGS (1)
  1. EFFEXOR XR [Suspect]
     Active Substance: VENLAFAXINE HYDROCHLORIDE
     Indication: MAJOR DEPRESSION
     Dosage: UNK, DAILY
     Dates: start: 2014

REACTIONS (5)
  - Abdominal pain upper [Unknown]
  - Influenza like illness [Unknown]
  - Therapeutic response unexpected [Unknown]
  - Drug withdrawal syndrome [Unknown]
  - Asthenia [Unknown]
